FAERS Safety Report 12237263 (Version 3)
Quarter: 2017Q3

REPORT INFORMATION
  Report Type: Spontaneous
  Country: US (occurrence: US)
  Receive Date: 20160405
  Receipt Date: 20170825
  Transmission Date: 20171127
  Serious: No
  Sender: FDA-Public Use
  Company Number: US-SA-2016SA062049

PATIENT
  Age: 30 Month
  Sex: Male

DRUGS (10)
  1. LASIX [Concomitant]
     Active Substance: FUROSEMIDE
     Dosage: Q12
     Route: 048
  2. MYOZYME [Suspect]
     Active Substance: ALGLUCOSIDASE ALFA
     Indication: GLYCOGEN STORAGE DISEASE TYPE II
     Route: 041
  3. RITUXIMAB. [Concomitant]
     Active Substance: RITUXIMAB
  4. PROPRANOLOL [Concomitant]
     Active Substance: PROPRANOLOL HYDROCHLORIDE
     Dosage: 2.2 MG Q6
  5. ENALAPRIL [Concomitant]
     Active Substance: ENALAPRIL
  6. PROPRANOLOL [Concomitant]
     Active Substance: PROPRANOLOL HYDROCHLORIDE
     Dosage: 1.12 MG Q6
  7. METHOTREXATE. [Concomitant]
     Active Substance: METHOTREXATE
  8. ENALAPRIL [Concomitant]
     Active Substance: ENALAPRIL
     Route: 048
  9. LASIX [Concomitant]
     Active Substance: FUROSEMIDE
     Dosage: Q12
     Route: 042
  10. LASIX [Concomitant]
     Active Substance: FUROSEMIDE
     Dosage: Q12
     Route: 048

REACTIONS (1)
  - Drug specific antibody present [Not Recovered/Not Resolved]
